FAERS Safety Report 5510631-3 (Version None)
Quarter: 2007Q4

REPORT INFORMATION
  Report Type: 
  Country: None (occurrence: None)
  Receive Date: 20071108
  Receipt Date: 20071026
  Transmission Date: 20080405
  Serious: Yes (Hospitalization)
  Sender: FDA-Public Use
  Company Number: FI-BOEHRINGER INGELHEIM PHARMACEUTICALS, INC.-2007-BP-09651YA

PATIENT
  Sex: Male
  Weight: 71 kg

DRUGS (8)
  1. TAMSULOSIN OCR [Suspect]
     Indication: BENIGN PROSTATIC HYPERPLASIA
     Route: 048
     Dates: start: 20070404
  2. TAMSULOSIN OCR [Suspect]
     Indication: PROSTATISM
     Route: 048
  3. TAMSULOSIN OCR [Suspect]
     Route: 048
  4. LANSOPRAZOLE [Concomitant]
     Indication: GASTROOESOPHAGEAL REFLUX DISEASE
     Route: 048
     Dates: start: 19900101
  5. SIMVASTATIN [Concomitant]
     Indication: HYPERCHOLESTEROLAEMIA
     Route: 048
     Dates: start: 20000101
  6. NITROGLYCERIN [Concomitant]
     Indication: CHEST PAIN
     Dates: start: 20000101
  7. DISPERIN [Concomitant]
     Indication: THROMBOSIS PROPHYLAXIS
     Route: 048
     Dates: start: 20060719, end: 20070604
  8. PANADOL [Concomitant]
     Indication: PAIN

REACTIONS (3)
  - CEREBROVASCULAR ACCIDENT [None]
  - DIZZINESS [None]
  - URTICARIA [None]
